FAERS Safety Report 25863656 (Version 1)
Quarter: 2025Q3

REPORT INFORMATION
  Report Type: Spontaneous
  Country: CN (occurrence: CN)
  Receive Date: 20250930
  Receipt Date: 20250930
  Transmission Date: 20251021
  Serious: Yes (Other)
  Sender: ACCORD
  Company Number: CN-MLMSERVICE-20250908-PI641575-00270-2

PATIENT
  Age: 53 Year
  Sex: Male

DRUGS (7)
  1. MYCOPHENOLATE MOFETIL [Suspect]
     Active Substance: MYCOPHENOLATE MOFETIL
     Indication: Antisynthetase syndrome
     Dosage: 1G/DAY, TWICE DAILY
  2. PREDNISOLONE [Suspect]
     Active Substance: PREDNISOLONE
     Indication: Antisynthetase syndrome
     Dosage: 0.5MG/KG/DAY TAPERING TO 10MG/DAY
  3. PIRFENIDONE [Suspect]
     Active Substance: PIRFENIDONE
     Indication: Antisynthetase syndrome
     Dosage: 1200MG/DAY, THREE TIMES DAILY
  4. PIRFENIDONE [Suspect]
     Active Substance: PIRFENIDONE
     Indication: Interstitial lung disease
     Dosage: 1200MG/DAY, THREE TIMES DAILY
  5. MYCOPHENOLATE MOFETIL [Suspect]
     Active Substance: MYCOPHENOLATE MOFETIL
     Indication: Interstitial lung disease
     Dosage: 1G/DAY, TWICE DAILY
  6. PREDNISOLONE [Suspect]
     Active Substance: PREDNISOLONE
     Indication: Antisynthetase syndrome
     Dosage: 0.5MG/KG/DAY TAPERING TO 10MG/DAY
  7. PREDNISOLONE [Suspect]
     Active Substance: PREDNISOLONE
     Indication: Interstitial lung disease
     Dosage: 0.5MG/KG/DAY TAPERING TO 10MG/DAY

REACTIONS (7)
  - Whipple^s disease [Recovered/Resolved]
  - Actinomycotic pulmonary infection [Recovered/Resolved]
  - Neisseria infection [Recovered/Resolved]
  - Idiopathic interstitial pneumonia [Recovered/Resolved]
  - Organising pneumonia [Recovered/Resolved]
  - Interstitial lung disease [Recovering/Resolving]
  - Condition aggravated [Recovering/Resolving]

NARRATIVE: CASE EVENT DATE: 20220101
